FAERS Safety Report 6247105-0 (Version None)
Quarter: 2009Q2

REPORT INFORMATION
  Report Type: 
  Country: None (occurrence: None)
  Receive Date: 20090626
  Receipt Date: 20090619
  Transmission Date: 20091009
  Serious: No
  Sender: FDA-Public Use
  Company Number: PHEH2009US06458

PATIENT
  Sex: Female

DRUGS (1)
  1. TASIGNA [Suspect]
     Dosage: 400 MG, Q12H
     Route: 048
     Dates: start: 20090601

REACTIONS (2)
  - ARRHYTHMIA [None]
  - MEDICATION ERROR [None]
